FAERS Safety Report 7935082-3 (Version None)
Quarter: 2011Q4

REPORT INFORMATION
  Report Type: 
  Country: None (occurrence: None)
  Receive Date: 20111122
  Receipt Date: 20110826
  Transmission Date: 20120403
  Serious: No
  Sender: FDA-Public Use
  Company Number: US-BAYER-2011-082724

PATIENT
  Sex: Male

DRUGS (3)
  1. ALEVE (CAPLET) [Suspect]
     Indication: HEADACHE
  2. ALEVE (CAPLET) [Suspect]
     Indication: BACK PAIN
  3. ALEVE (CAPLET) [Suspect]
     Indication: ARTHRALGIA

REACTIONS (3)
  - ARTHRALGIA [None]
  - BACK PAIN [None]
  - HEADACHE [None]
